FAERS Safety Report 8347697-1 (Version None)
Quarter: 2012Q2

REPORT INFORMATION
  Report Type: 
  Country: None (occurrence: None)
  Receive Date: 20120509
  Receipt Date: 20120426
  Transmission Date: 20120825
  Serious: Yes (Hospitalization)
  Sender: FDA-Public Use
  Company Number: US-ELI_LILLY_AND_COMPANY-US201205000743

PATIENT
  Sex: Female

DRUGS (3)
  1. FORTEO [Suspect]
     Indication: OSTEOPOROSIS
     Dosage: 20 UG, QD
     Dates: start: 20110408
  2. PRESERVISION EYE VITAMIN AND MINERAL SUPPL. [Concomitant]
  3. BYSTOLIC [Concomitant]

REACTIONS (8)
  - JOINT SWELLING [None]
  - DRUG HYPERSENSITIVITY [None]
  - RHEUMATOID ARTHRITIS [None]
  - URINARY TRACT INFECTION [None]
  - ILL-DEFINED DISORDER [None]
  - OEDEMA PERIPHERAL [None]
  - ARTHRALGIA [None]
  - MUSCULOSKELETAL STIFFNESS [None]
